FAERS Safety Report 26163747 (Version 1)
Quarter: 2025Q4

REPORT INFORMATION
  Report Type: Spontaneous
  Country: US (occurrence: None)
  Receive Date: 20251216
  Receipt Date: 20251216
  Transmission Date: 20260117
  Serious: No
  Sender: UCB
  Company Number: US-UCBSA-2025069321

PATIENT
  Age: 33 Year

DRUGS (1)
  1. BIMZELX [Suspect]
     Active Substance: BIMEKIZUMAB-BKZX
     Indication: Hidradenitis
     Dosage: 320 MILLIGRAM, EV 2 WEEKS(QOW)

REACTIONS (7)
  - Hidradenitis [Unknown]
  - Condition aggravated [Unknown]
  - Headache [Unknown]
  - Fatigue [Unknown]
  - Muscular weakness [Unknown]
  - Cyst drainage [Unknown]
  - Inappropriate schedule of product administration [Unknown]
